FAERS Safety Report 22756105 (Version 2)
Quarter: 2024Q4

REPORT INFORMATION
  Report Type: Report from Study
  Country: US (occurrence: US)
  Receive Date: 20230727
  Receipt Date: 20241021
  Transmission Date: 20250115
  Serious: No
  Sender: NOVARTIS
  Company Number: US-002147023-NVSC2023US165246

PATIENT
  Sex: Male
  Weight: 83.91 kg

DRUGS (2)
  1. ENTRESTO [Suspect]
     Active Substance: SACUBITRIL\VALSARTAN
     Indication: Cardiac failure chronic
     Dosage: 1 DOSAGE FORM, BID (24/26 MG)
     Route: 048
     Dates: start: 2021
  2. ENTRESTO [Suspect]
     Active Substance: SACUBITRIL\VALSARTAN
     Indication: Coronary artery bypass
     Dosage: 24.26 MG, BID, 49.51
     Route: 048
     Dates: start: 202102

REACTIONS (2)
  - Blood potassium increased [Unknown]
  - Weight decreased [Unknown]
